FAERS Safety Report 25571317 (Version 2)
Quarter: 2025Q3

REPORT INFORMATION
  Report Type: Spontaneous
  Country: CA (occurrence: CA)
  Receive Date: 20250717
  Receipt Date: 20250811
  Transmission Date: 20251021
  Serious: Yes (Other)
  Sender: STALLERGENES
  Company Number: CA-STALCOR-2025-AER-02247

PATIENT
  Age: 33 Year
  Sex: Male

DRUGS (7)
  1. CAT HAIR, STANDARDIZED [Suspect]
     Active Substance: FELIS CATUS HAIR
     Indication: Rhinitis allergic
     Route: 058
     Dates: start: 202408
  2. AGROSTIS GIGANTEA POLLEN\DACTYLIS GLOMERATA POLLEN\PHLEUM PRATENSE POL [Suspect]
     Active Substance: AGROSTIS GIGANTEA POLLEN\DACTYLIS GLOMERATA POLLEN\PHLEUM PRATENSE POLLEN\POA PRATENSIS POLLEN
     Indication: Rhinitis allergic
     Route: 058
     Dates: start: 202408
  3. MIXED RAGWEED [Suspect]
     Active Substance: AMBROSIA ARTEMISIIFOLIA POLLEN\AMBROSIA TRIFIDA POLLEN
     Indication: Rhinitis allergic
     Route: 058
     Dates: start: 202408
  4. ALNUS SERRULATA POLLEN [Suspect]
     Active Substance: ALNUS SERRULATA POLLEN
     Indication: Rhinitis allergic
     Route: 058
     Dates: start: 202408
  5. BIRCH [Suspect]
     Active Substance: BETULA NIGRA POLLEN
     Indication: Rhinitis allergic
     Route: 058
     Dates: start: 202408
  6. PHENOL SALINE INJ [Concomitant]
     Indication: Rhinitis allergic
     Route: 058
     Dates: start: 202408
  7. PHENOL SALINE INJ [Concomitant]
     Route: 058
     Dates: start: 202408

REACTIONS (6)
  - Hypersensitivity [Recovered/Resolved]
  - Dyspnoea [Recovered/Resolved]
  - Wheezing [Recovered/Resolved]
  - Urticaria [Recovered/Resolved]
  - Injection site reaction [Recovered/Resolved]
  - Product complaint [Recovered/Resolved]

NARRATIVE: CASE EVENT DATE: 20250502
